FAERS Safety Report 7807939-5 (Version None)
Quarter: 2011Q4

REPORT INFORMATION
  Report Type: 
  Country: None (occurrence: None)
  Receive Date: 20111011
  Receipt Date: 20111011
  Transmission Date: 20120403
  Serious: No
  Sender: FDA-Public Use
  Company Number: None

PATIENT
  Sex: Male
  Weight: 97.975 kg

DRUGS (2)
  1. TAMSULOSIN HCL [Suspect]
     Indication: URINARY TRACT OBSTRUCTION
     Dosage: ONE CAPSULE
     Route: 048
  2. TAMSULOSIN HCL [Suspect]
     Indication: BENIGN PROSTATIC HYPERPLASIA
     Dosage: ONE CAPSULE
     Route: 048

REACTIONS (8)
  - NASAL CONGESTION [None]
  - SINUS HEADACHE [None]
  - PAIN IN JAW [None]
  - EJACULATION FAILURE [None]
  - MALAISE [None]
  - ALCOHOL USE [None]
  - HEADACHE [None]
  - EYE PAIN [None]
